FAERS Safety Report 12599346 (Version 2)
Quarter: 2016Q3

REPORT INFORMATION
  Report Type: Spontaneous
  Country: CN (occurrence: CN)
  Receive Date: 20160727
  Receipt Date: 20160818
  Transmission Date: 20161109
  Serious: Yes (Death, Other)
  Sender: FDA-Public Use
  Company Number: CN-PFIZER INC-2016343415

PATIENT
  Age: 27 Year
  Sex: Male

DRUGS (1)
  1. SUTENT [Suspect]
     Active Substance: SUNITINIB MALATE
     Indication: GASTROINTESTINAL STROMAL TUMOUR

REACTIONS (4)
  - Tumour compression [Unknown]
  - Gait disturbance [Unknown]
  - Gastrointestinal stromal tumour [Fatal]
  - Disease progression [Fatal]
